FAERS Safety Report 8932454 (Version 1)
Quarter: 2012Q4

REPORT INFORMATION
  Report Type: 
  Country: DE (occurrence: DE)
  Receive Date: 20121128
  Receipt Date: 20121128
  Transmission Date: 20130627
  Serious: Yes (Hospitalization, Other)
  Sender: FDA-Public Use
  Company Number: DE-ELI_LILLY_AND_COMPANY-DE201208004780

PATIENT
  Sex: Female

DRUGS (3)
  1. FORSTEO [Suspect]
     Indication: OSTEOPOROSIS
     Dosage: UNK, qd
     Route: 058
     Dates: start: 20120209
  2. IDEOS [Concomitant]
     Dosage: UNK, unknown
     Route: 065
  3. VIGANTOLETTEN [Concomitant]
     Dosage: UNK, unknown
     Route: 065

REACTIONS (12)
  - Catheterisation cardiac [Unknown]
  - Hospitalisation [Unknown]
  - Cardiac failure [Unknown]
  - Cardiac disorder [Unknown]
  - Pulmonary oedema [Unknown]
  - Disorientation [Unknown]
  - Dyspnoea [Not Recovered/Not Resolved]
  - Heart rate irregular [Unknown]
  - Cardiovascular disorder [Unknown]
  - Blood pressure increased [Unknown]
  - Hot flush [Unknown]
  - Gait disturbance [Unknown]
